FAERS Safety Report 25117243 (Version 2)
Quarter: 2025Q2

REPORT INFORMATION
  Report Type: Spontaneous
  Country: JP (occurrence: JP)
  Receive Date: 20250325
  Receipt Date: 20250513
  Transmission Date: 20250716
  Serious: No
  Sender: ARDELYX
  Company Number: JP-ARDELYX-2025ARDX001991

PATIENT
  Age: 6 Decade
  Sex: Male

DRUGS (1)
  1. TENAPANOR HYDROCHLORIDE [Suspect]
     Active Substance: TENAPANOR HYDROCHLORIDE
     Indication: Blood phosphorus increased
     Route: 048

REACTIONS (2)
  - Blood phosphorus increased [Unknown]
  - Faeces soft [Unknown]
